FAERS Safety Report 11221706 (Version 1)
Quarter: 2015Q2

REPORT INFORMATION
  Report Type: Spontaneous
  Country: US (occurrence: US)
  Receive Date: 20150626
  Receipt Date: 20150626
  Transmission Date: 20150821
  Serious: Yes (Disabling, Other)
  Sender: FDA-Public Use
  Company Number: US-ABBVIE-15P-163-1413833-00

PATIENT
  Sex: Female

DRUGS (1)
  1. HUMIRA [Suspect]
     Active Substance: ADALIMUMAB
     Indication: COLITIS ULCERATIVE
     Route: 065
     Dates: start: 20140619

REACTIONS (6)
  - Asthenia [Unknown]
  - Dysarthria [Unknown]
  - Malaise [Unknown]
  - Multiple injuries [Unknown]
  - Adverse drug reaction [Unknown]
  - Neuropathy peripheral [Unknown]
